FAERS Safety Report 5481760-8 (Version None)
Quarter: 2007Q4

REPORT INFORMATION
  Report Type: 
  Country: None (occurrence: None)
  Receive Date: 20071010
  Receipt Date: 20070816
  Transmission Date: 20080405
  Serious: Yes (Other)
  Sender: FDA-Public Use
  Company Number: US-PURDUE-USA_2007_0029015

PATIENT
  Sex: Male

DRUGS (1)
  1. OXYCONTIN [Suspect]
     Indication: BACK DISORDER
     Dosage: 20 MG, QID
     Route: 048
     Dates: start: 19931010, end: 20010531

REACTIONS (10)
  - AGGRESSION [None]
  - AMNESIA [None]
  - DRUG DEPENDENCE [None]
  - DRUG EFFECT INCREASED [None]
  - INADEQUATE ANALGESIA [None]
  - IRRITABILITY [None]
  - MENTAL IMPAIRMENT [None]
  - NERVOUSNESS [None]
  - PHYSICAL ASSAULT [None]
  - SUICIDE ATTEMPT [None]
